FAERS Safety Report 19142159 (Version 1)
Quarter: 2021Q2

REPORT INFORMATION
  Report Type: Spontaneous
  Country: SA (occurrence: SA)
  Receive Date: 20210416
  Receipt Date: 20210416
  Transmission Date: 20210717
  Serious: Yes (Other)
  Sender: FDA-Public Use
  Company Number: SA-ALVOGEN-2021-ALVOGEN-116856

PATIENT
  Age: 39 Year
  Sex: Female

DRUGS (1)
  1. LEVONORGESTREL. [Suspect]
     Active Substance: LEVONORGESTREL
     Indication: CONTRACEPTION
     Dosage: 0.075 MG; TWO TABLETS, STAT DOSE),

REACTIONS (1)
  - Ruptured ectopic pregnancy [Unknown]
